FAERS Safety Report 25154371 (Version 3)
Quarter: 2025Q2

REPORT INFORMATION
  Report Type: Spontaneous
  Country: US (occurrence: US)
  Receive Date: 20250403
  Receipt Date: 20250501
  Transmission Date: 20250716
  Serious: Yes (Hospitalization)
  Sender: ALEXION PHARMACEUTICALS
  Company Number: US-AstraZeneca-CH-00836926AP

PATIENT

DRUGS (2)
  1. SYMBICORT [Suspect]
     Active Substance: BUDESONIDE\FORMOTEROL FUMARATE DIHYDRATE
  2. SYMBICORT [Suspect]
     Active Substance: BUDESONIDE\FORMOTEROL FUMARATE DIHYDRATE
     Route: 065

REACTIONS (9)
  - Anaemia [Unknown]
  - Illness [Unknown]
  - COVID-19 [Unknown]
  - Influenza [Unknown]
  - Cough [Unknown]
  - Nervousness [Unknown]
  - Product dose omission issue [Unknown]
  - Suspected product tampering [Unknown]
  - Chronic obstructive pulmonary disease [Unknown]
